FAERS Safety Report 5413525-7 (Version None)
Quarter: 2007Q3

REPORT INFORMATION
  Report Type: 
  Country: None (occurrence: None)
  Receive Date: 20070810
  Receipt Date: 20070731
  Transmission Date: 20080115
  Serious: Yes (Other)
  Sender: FDA-Public Use
  Company Number: 2007SP011015

PATIENT
  Age: 3 Year
  Sex: Male
  Weight: 18.1439 kg

DRUGS (1)
  1. CHILDREN'S CLARITIN [Suspect]
     Indication: RHINORRHOEA
     Dosage: 1 DF; HS; PO
     Route: 048
     Dates: start: 20061201, end: 20070531

REACTIONS (7)
  - AGGRESSION [None]
  - AUTISM SPECTRUM DISORDER [None]
  - CRYING [None]
  - IRRITABILITY [None]
  - PHARMACEUTICAL PRODUCT COMPLAINT [None]
  - PSYCHOMOTOR HYPERACTIVITY [None]
  - SCREAMING [None]
